FAERS Safety Report 7145849-X (Version None)
Quarter: 2010Q4

REPORT INFORMATION
  Report Type: 
  Country: None (occurrence: None)
  Receive Date: 20101208
  Receipt Date: 20101202
  Transmission Date: 20110411
  Serious: Yes (Other)
  Sender: FDA-Public Use
  Company Number: B0359635A

PATIENT
  Age: 27 Year
  Sex: Male

DRUGS (11)
  1. SEROXAT [Suspect]
     Indication: PHOBIA
     Dosage: 20MG PER DAY
     Dates: start: 19990901, end: 20021201
  2. IBUPROFEN [Suspect]
     Indication: PRODUCT USED FOR UNKNOWN INDICATION
     Dates: start: 20020820, end: 20020820
  3. NUROFEN [Suspect]
     Dates: start: 20020820
  4. CODEINE [Suspect]
     Dates: start: 20020820
  5. ASPIRIN [Suspect]
     Route: 065
  6. LOFEPRAMINE [Suspect]
  7. IBUPROFEN [Suspect]
     Dates: start: 20020820
  8. COCAINE [Concomitant]
     Dates: start: 20020801
  9. METHAMPHETAMINE HYDROCHLORIDE [Concomitant]
     Dates: start: 20020801
  10. FLUOXETINE [Concomitant]
  11. LITHIUM CARBONATE [Concomitant]

REACTIONS (11)
  - AGGRESSION [None]
  - CONSTIPATION [None]
  - DEPRESSION [None]
  - DRUG WITHDRAWAL SYNDROME [None]
  - DRY MOUTH [None]
  - OVERDOSE [None]
  - SEXUAL DYSFUNCTION [None]
  - SOCIAL PHOBIA [None]
  - SUICIDAL IDEATION [None]
  - SUICIDE ATTEMPT [None]
  - VISION BLURRED [None]
